FAERS Safety Report 4779078-1 (Version None)
Quarter: 2005Q3

REPORT INFORMATION
  Report Type: 
  Country: None (occurrence: None)
  Receive Date: 20050923
  Receipt Date: 20050915
  Transmission Date: 20060218
  Serious: Yes (Other)
  Sender: FDA-Public Use
  Company Number: 2005-09-0867

PATIENT
  Age: 25 Year
  Sex: Female

DRUGS (1)
  1. AERIUS (DESLORATADINE) TABLETS [Suspect]
     Dosage: 5MG ORAL
     Route: 048

REACTIONS (2)
  - ANGIONEUROTIC OEDEMA [None]
  - PERIORBITAL OEDEMA [None]
